FAERS Safety Report 4694356-2 (Version None)
Quarter: 2005Q2

REPORT INFORMATION
  Report Type: 
  Country: None (occurrence: None)
  Receive Date: 20050620
  Receipt Date: 20050602
  Transmission Date: 20051028
  Serious: Yes (Hospitalization)
  Sender: FDA-Public Use
  Company Number: US-BRISTOL-MYERS SQUIBB COMPANY-12992590

PATIENT
  Age: 73 Year
  Sex: Male

DRUGS (3)
  1. ERBITUX [Suspect]
     Indication: NON-SMALL CELL LUNG CANCER
     Dosage: 8TH COURSE. THERAPY START DATE 05-APR-05.
     Route: 042
     Dates: start: 20050524, end: 20050524
  2. CARBOPLATIN [Suspect]
     Indication: NON-SMALL CELL LUNG CANCER
     Dosage: 3RD COURSE. THERAPY START DATE 05-APR-05.
     Route: 042
     Dates: start: 20050518, end: 20050518
  3. GEMZAR [Suspect]
     Indication: NON-SMALL CELL LUNG CANCER
     Dosage: 6TH COURSE.  THERAPY START DATE 05-APR-05.
     Route: 042
     Dates: start: 20050524, end: 20050524

REACTIONS (3)
  - DEHYDRATION [None]
  - DIARRHOEA [None]
  - FATIGUE [None]
